FAERS Safety Report 18354993 (Version 1)
Quarter: 2020Q4

REPORT INFORMATION
  Report Type: Spontaneous
  Country: US (occurrence: US)
  Receive Date: 20201007
  Receipt Date: 20201007
  Transmission Date: 20210114
  Serious: Yes (Hospitalization, Other)
  Sender: FDA-Public Use
  Company Number: US-HIKMA PHARMACEUTICALS USA INC.-US-H14001-20-52220

PATIENT
  Age: 28 Year
  Sex: Female

DRUGS (2)
  1. LITHIUM. [Suspect]
     Active Substance: LITHIUM
     Indication: BIPOLAR DISORDER
     Route: 065
  2. DEPO-PROVERA [Suspect]
     Active Substance: MEDROXYPROGESTERONE ACETATE
     Indication: CONTRACEPTION
     Route: 065

REACTIONS (7)
  - Sepsis [Unknown]
  - Intraventricular haemorrhage [Unknown]
  - Pulmonary embolism [Unknown]
  - Cerebral venous sinus thrombosis [Recovering/Resolving]
  - Multiple organ dysfunction syndrome [Unknown]
  - Stevens-Johnson syndrome [Unknown]
  - Papilloedema [Recovering/Resolving]
